FAERS Safety Report 26032432 (Version 1)
Quarter: 2025Q4

REPORT INFORMATION
  Report Type: Spontaneous
  Country: EU (occurrence: EU)
  Receive Date: 20251112
  Receipt Date: 20251112
  Transmission Date: 20260118
  Serious: Yes (Disabling, Other)
  Sender: TEVA
  Company Number: None

PATIENT
  Age: 63 Year
  Sex: Female
  Weight: 77 kg

DRUGS (1)
  1. AMOXICILLIN\CLAVULANIC ACID [Suspect]
     Active Substance: AMOXICILLIN\CLAVULANIC ACID
     Indication: Pulpitis dental
     Dosage: 1 DF = 875 MG AMOXICILLIN IN THE FORM OF AMOXICILLIN TRIHYDRATE AND 125 MG CLAVULANIC ACID IN THE...
     Route: 048
     Dates: start: 20251008, end: 20251013

REACTIONS (26)
  - Diarrhoea [Recovering/Resolving]
  - Vulvovaginal erythema [Recovering/Resolving]
  - Swelling face [Recovering/Resolving]
  - Dyspnoea [Recovering/Resolving]
  - Vulvovaginal inflammation [Recovering/Resolving]
  - Back pain [Recovering/Resolving]
  - Anal inflammation [Recovering/Resolving]
  - Candida infection [Recovering/Resolving]
  - Anal pruritus [Recovering/Resolving]
  - Nausea [Recovering/Resolving]
  - Eyelids pruritus [Recovering/Resolving]
  - Myositis [Recovering/Resolving]
  - Ocular hyperaemia [Recovering/Resolving]
  - Anorectal discomfort [Recovering/Resolving]
  - Eye pruritus [Recovering/Resolving]
  - Anal erythema [Recovering/Resolving]
  - Myalgia [Recovering/Resolving]
  - Swelling of eyelid [Recovering/Resolving]
  - Erythema of eyelid [Recovering/Resolving]
  - Back pain [Recovering/Resolving]
  - Bone pain [Recovering/Resolving]
  - Abdominal pain [Recovering/Resolving]
  - Eye swelling [Recovering/Resolving]
  - Vulvovaginal pruritus [Recovering/Resolving]
  - Vulvovaginal burning sensation [Recovering/Resolving]
  - Headache [Recovering/Resolving]

NARRATIVE: CASE EVENT DATE: 20251009
